FAERS Safety Report 8523025-3 (Version None)
Quarter: 2012Q3

REPORT INFORMATION
  Report Type: 
  Country: None (occurrence: None)
  Receive Date: 20120720
  Receipt Date: 20120713
  Transmission Date: 20120928
  Serious: Yes (Hospitalization)
  Sender: FDA-Public Use
  Company Number: IT-BRISTOL-MYERS SQUIBB COMPANY-16448540

PATIENT
  Age: 80 Year
  Sex: Male

DRUGS (9)
  1. PROSTIDE [Concomitant]
     Dosage: FILM COVERED TABLET (DOSAGE: 1 DOSAGE UNIT).
  2. BISOPROLOL FUMARATE [Concomitant]
     Dosage: DOSAGE: 1 DOSAGE UNIT
  3. CLOPIDOGREL + ACETYLSALICYLIC ACID [Concomitant]
  4. ASPIRIN [Concomitant]
     Dosage: GASTRORESISTANT TABLETS (DOSAGE: 1 DOSAGE UNIT).
  5. ATORVASTATIN CALCIUM [Concomitant]
     Dosage: 80MH FILM COVERED TABLET (DOSAGE: 1 DOSAGE UNIT).
  6. VALSARTAN [Concomitant]
  7. TAMSULOSIN HCL [Concomitant]
     Dosage: 1 DOSAGE UNIT
  8. COUMADIN [Suspect]
     Indication: INTRACARDIAC THROMBUS
     Dosage: 1 DOSAGE UNIT/DAY,INTERRUPTED:30JAN2012.RESTARTED:15FEB2012.
     Route: 048
     Dates: start: 20120120
  9. CORDARONE [Concomitant]
     Dosage: DOSAGE: 1 DOSAGE UNIT

REACTIONS (2)
  - ACUTE PULMONARY OEDEMA [None]
  - INTERNATIONAL NORMALISED RATIO INCREASED [None]
